FAERS Safety Report 4775198-6 (Version None)
Quarter: 2005Q3

REPORT INFORMATION
  Report Type: 
  Country: None (occurrence: None)
  Receive Date: 20050920
  Receipt Date: 20050908
  Transmission Date: 20060218
  Serious: Yes (Other)
  Sender: FDA-Public Use
  Company Number: 2005125811

PATIENT
  Age: 72 Year
  Sex: Female
  Weight: 108.8633 kg

DRUGS (8)
  1. DILANTIN [Suspect]
     Indication: GRAND MAL CONVULSION
     Dosage: ORAL
     Route: 048
  2. FOLIC ACID [Concomitant]
  3. ATENOLOL [Concomitant]
  4. NEXIUM [Concomitant]
  5. LASIX [Concomitant]
  6. DOLOBID [Concomitant]
  7. PLAQUENIL [Concomitant]
  8. DARVOCET [Concomitant]

REACTIONS (8)
  - ANAEMIA [None]
  - CONGENITAL CEREBROVASCULAR ANOMALY [None]
  - EYE PAIN [None]
  - GRAND MAL CONVULSION [None]
  - HEADACHE [None]
  - RHEUMATOID ARTHRITIS [None]
  - SURGERY [None]
  - TREATMENT NONCOMPLIANCE [None]
